FAERS Safety Report 5365348-5 (Version None)
Quarter: 2007Q2

REPORT INFORMATION
  Report Type: 
  Country: None (occurrence: None)
  Receive Date: 20070530
  Receipt Date: 20070222
  Transmission Date: 20071010
  Serious: No
  Sender: FDA-Public Use
  Company Number: 2006PV007108

PATIENT
  Age: 61 Year
  Sex: Female
  Weight: 81.6475 kg

DRUGS (17)
  1. BYETTA [Suspect]
     Indication: DIABETES MELLITUS NON-INSULIN-DEPENDENT
     Dosage: 10 MCG; QD; SC, 10 MCG; BID; SC, 10 MCG; BID; SC, 5 MCG; BID; SC, 10 MCG; BID; SC, 5 MCG; BID; SC
     Route: 058
     Dates: start: 20060116, end: 20060116
  2. BYETTA [Suspect]
     Indication: DIABETES MELLITUS NON-INSULIN-DEPENDENT
     Dosage: 10 MCG; QD; SC, 10 MCG; BID; SC, 10 MCG; BID; SC, 5 MCG; BID; SC, 10 MCG; BID; SC, 5 MCG; BID; SC
     Route: 058
     Dates: start: 20060827, end: 20060831
  3. BYETTA [Suspect]
     Indication: DIABETES MELLITUS NON-INSULIN-DEPENDENT
     Dosage: 10 MCG; QD; SC, 10 MCG; BID; SC, 10 MCG; BID; SC, 5 MCG; BID; SC, 10 MCG; BID; SC, 5 MCG; BID; SC
     Route: 058
     Dates: start: 20060901, end: 20060901
  4. BYETTA [Suspect]
     Indication: DIABETES MELLITUS NON-INSULIN-DEPENDENT
     Dosage: 10 MCG; QD; SC, 10 MCG; BID; SC, 10 MCG; BID; SC, 5 MCG; BID; SC, 10 MCG; BID; SC, 5 MCG; BID; SC
     Route: 058
     Dates: start: 20060301
  5. BYETTA [Suspect]
     Indication: DIABETES MELLITUS NON-INSULIN-DEPENDENT
     Dosage: 10 MCG; QD; SC, 10 MCG; BID; SC, 10 MCG; BID; SC, 5 MCG; BID; SC, 10 MCG; BID; SC, 5 MCG; BID; SC
     Route: 058
     Dates: start: 20060901
  6. BYETTA [Suspect]
  7. BYETTA [Suspect]
  8. METFORMIN HCL [Concomitant]
  9. GLUCOTROL XL [Concomitant]
  10. WELLBUTRIN [Concomitant]
  11. CRESTOR [Concomitant]
  12. COZAAR [Concomitant]
  13. CALCIUM CHLORIDE [Concomitant]
  14. NEXIUM [Concomitant]
  15. .. [Concomitant]
  16. .............. [Concomitant]
  17. ............... [Concomitant]

REACTIONS (16)
  - ABDOMINAL DISTENSION [None]
  - ANXIETY [None]
  - BLOOD GLUCOSE DECREASED [None]
  - CHILLS [None]
  - DECREASED APPETITE [None]
  - DYSPNOEA [None]
  - FEELING COLD [None]
  - FEELING JITTERY [None]
  - HEADACHE [None]
  - HUNGER [None]
  - HYPOAESTHESIA [None]
  - JOINT SWELLING [None]
  - LIGAMENT INJURY [None]
  - SENSATION OF FOREIGN BODY [None]
  - TREMOR [None]
  - WEIGHT DECREASED [None]
